FAERS Safety Report 8904640 (Version 1)
Quarter: 2012Q4

REPORT INFORMATION
  Report Type: 
  Country: US (occurrence: US)
  Receive Date: 20121113
  Receipt Date: 20121113
  Transmission Date: 20130627
  Serious: Yes (Other)
  Sender: FDA-Public Use
  Company Number: PHHY2012US056509

PATIENT
  Age: 73 Year
  Sex: Female
  Weight: 73 kg

DRUGS (15)
  1. JAKAFI [Suspect]
     Indication: POLYCYTHAEMIA VERA
     Dosage: 20 mg, BID
     Route: 048
     Dates: start: 20120223, end: 20120514
  2. JAKAFI [Suspect]
     Indication: MYELOFIBROSIS
     Dosage: 25 mg, BID
     Route: 048
     Dates: start: 20120515, end: 2012
  3. JAKAFI [Suspect]
     Dosage: 37.5 mg, QD
     Dates: start: 201206
  4. METOPROLOL [Suspect]
     Dosage: 50 mg, UNK
     Dates: end: 2012
  5. METOPROLOL [Suspect]
     Dosage: 25 mg, BID
     Route: 048
     Dates: start: 2012
  6. VITAMIN E [Concomitant]
  7. ALLOPURINOL [Concomitant]
  8. GLUCOSAMINE SULFATE W/CHONDROITIN [Concomitant]
  9. CALCIUM [Concomitant]
  10. MULTIVITAMINS, PLAIN [Concomitant]
  11. ASPIRIN [Concomitant]
  12. D-MANNOSE [Concomitant]
  13. L-LYSINE [Concomitant]
  14. CRANBERRY [Concomitant]
  15. VITAMIN D [Concomitant]

REACTIONS (6)
  - Fall [Recovering/Resolving]
  - Balance disorder [Recovering/Resolving]
  - Gait disturbance [Unknown]
  - Dizziness [Unknown]
  - Weight increased [Unknown]
  - Flatulence [Unknown]
